FAERS Safety Report 15752014 (Version 1)
Quarter: 2018Q4

REPORT INFORMATION
  Report Type: Report from Study
  Country: IT (occurrence: IT)
  Receive Date: 20181221
  Receipt Date: 20181221
  Transmission Date: 20190205
  Serious: Yes (Hospitalization)
  Sender: FDA-Public Use
  Company Number: IT-PFIZER INC-2018519690

PATIENT
  Age: 58 Year
  Sex: Female
  Weight: 66 kg

DRUGS (4)
  1. ADRIBLASTINA [Suspect]
     Active Substance: DOXORUBICIN HYDROCHLORIDE
     Indication: FOLLICLE CENTRE LYMPHOMA, FOLLICULAR GRADE I, II, III
     Dosage: 87 MG, CYCLIC
     Route: 042
     Dates: start: 20180717
  2. VINCRISTINA TEVA [Suspect]
     Active Substance: VINCRISTINE
     Indication: FOLLICLE CENTRE LYMPHOMA, FOLLICULAR GRADE I, II, III
     Dosage: 2 MG, CYCLIC
     Route: 040
     Dates: start: 20180717
  3. MABTHERA [Concomitant]
     Active Substance: RITUXIMAB
     Indication: FOLLICLE CENTRE LYMPHOMA, FOLLICULAR GRADE I, II, III
     Dosage: 1 DF, UNK
     Route: 058
     Dates: start: 20180926, end: 20180926
  4. ENDOXAN-BAXTER [Suspect]
     Active Substance: CYCLOPHOSPHAMIDE
     Indication: FOLLICLE CENTRE LYMPHOMA, FOLLICULAR GRADE I, II, III
     Dosage: 1.3 G, CYCLIC
     Route: 041
     Dates: start: 20180717

REACTIONS (6)
  - Hypotension [Recovering/Resolving]
  - Gastric disorder [Recovering/Resolving]
  - Gastric ulcer [Recovering/Resolving]
  - Febrile neutropenia [Recovering/Resolving]
  - Oesophageal ulcer [Recovering/Resolving]
  - Abdominal pain upper [Recovering/Resolving]

NARRATIVE: CASE EVENT DATE: 20181006
